FAERS Safety Report 21455311 (Version 2)
Quarter: 2022Q4

REPORT INFORMATION
  Report Type: Report from Study
  Country: TH (occurrence: TH)
  Receive Date: 20221014
  Receipt Date: 20221019
  Transmission Date: 20230112
  Serious: Yes (Other)
  Sender: FDA-Public Use
  Company Number: TH-BRISTOL-MYERS SQUIBB COMPANY-2022-118487

PATIENT
  Age: 64 Year
  Sex: Male

DRUGS (1)
  1. OPDIVO [Suspect]
     Active Substance: NIVOLUMAB
     Indication: Hepatocellular carcinoma
     Route: 065

REACTIONS (5)
  - Malignant neoplasm progression [Unknown]
  - Blood test abnormal [Unknown]
  - Epistaxis [Unknown]
  - Haemorrhage intracranial [Unknown]
  - Hepatic pain [Unknown]

NARRATIVE: CASE EVENT DATE: 20220101
